FAERS Safety Report 4982199-1 (Version None)
Quarter: 2006Q2

REPORT INFORMATION
  Report Type: 
  Country: None (occurrence: None)
  Receive Date: 20060419
  Receipt Date: 20060331
  Transmission Date: 20061013
  Serious: Yes (Other)
  Sender: FDA-Public Use
  Company Number: US20060400277

PATIENT
  Age: 53 Year
  Sex: Female

DRUGS (13)
  1. FORTEO [Suspect]
     Indication: SPINAL FRACTURE
     Dates: start: 20050812
  2. FORTEO PEN (FORTEO PEN) [Concomitant]
  3. FOSAMAX [Concomitant]
  4. BACLOFEN [Concomitant]
  5. CELEBREX [Concomitant]
  6. DIAZEPAM [Concomitant]
  7. CALCIUM (CALCIUM) [Concomitant]
  8. VITAMIN D [Concomitant]
  9. MINOCYCLINE HCL [Concomitant]
  10. MULTIVITAMINS (ASCORBIC ACID, ERGOCALCIFEROL, FOLIC ACID, NICOTINAMIDE [Concomitant]
  11. PREGABALIN (PREGABALIN) [Concomitant]
  12. MAGNESIUM (MAGNESIUM) [Concomitant]
  13. ASPIRIN [Concomitant]

REACTIONS (3)
  - FEELING ABNORMAL [None]
  - HYPERTONIC BLADDER [None]
  - PHARMACEUTICAL PRODUCT COMPLAINT [None]
